FAERS Safety Report 18420663 (Version 2)
Quarter: 2020Q4

REPORT INFORMATION
  Report Type: Spontaneous
  Country: IT (occurrence: IT)
  Receive Date: 20201023
  Receipt Date: 20201112
  Transmission Date: 20210114
  Serious: Yes (Congenital Anomaly, Other)
  Sender: FDA-Public Use
  Company Number: NVSC2020IT284503

PATIENT

DRUGS (1)
  1. ADALIMUMAB [Suspect]
     Active Substance: ADALIMUMAB
     Indication: FOETAL EXPOSURE DURING PREGNANCY
     Dosage: MATERNAL DOSE: UNK
     Route: 064
     Dates: start: 201810, end: 201906

REACTIONS (3)
  - Foetal exposure during pregnancy [Unknown]
  - Ureteric dilatation [Unknown]
  - Kidney enlargement [Unknown]

NARRATIVE: CASE EVENT DATE: 2019
